FAERS Safety Report 4682691-3 (Version None)
Quarter: 2005Q2

REPORT INFORMATION
  Report Type: 
  Country: None (occurrence: None)
  Receive Date: 20050606
  Receipt Date: 20040324
  Transmission Date: 20051028
  Serious: Yes (Hospitalization)
  Sender: FDA-Public Use
  Company Number: ZA-SANOFI-SYNTHELABO-D01200400983

PATIENT
  Sex: Female

DRUGS (13)
  1. SR57746 OR PLACEBO [Suspect]
     Route: 048
     Dates: start: 20031111, end: 20040313
  2. OXALIPLATIN [Suspect]
     Route: 042
     Dates: start: 20040310, end: 20040310
  3. FLUOROURACIL [Suspect]
     Dosage: (400 MG/M2 AS IV BOLUS THEN 600 MG/M2 AS 22 HOURS CONTINUOUS INFUSION D1-D2 Q2W)
     Route: 042
     Dates: start: 20040310, end: 20040310
  4. LEUCOVORIN [Suspect]
     Dosage: (200 MG/M2 AS 2 HOURS INFUSION ON D1-D2 Q2W)
     Route: 042
     Dates: start: 20040310, end: 20040310
  5. CIPRAMIL [Concomitant]
     Dosage: UNK
     Route: 065
     Dates: start: 20010101
  6. IMODIUM [Concomitant]
     Dosage: UNK
     Route: 065
     Dates: start: 20040129
  7. CIPROFLOXACIN HCL [Concomitant]
     Dosage: UNK
     Route: 065
     Dates: start: 20040106, end: 20040112
  8. INDERAL [Concomitant]
     Dosage: UNK
     Route: 065
     Dates: start: 19950101
  9. ANAFRANIL [Concomitant]
     Dosage: UNK
     Route: 065
     Dates: start: 20030601
  10. CODEINE PHOSPHATE [Concomitant]
     Dosage: UNK
     Route: 065
     Dates: start: 20030903
  11. FYBOGEL [Concomitant]
     Dosage: UNK
     Route: 065
     Dates: start: 20030903
  12. LENTOGESIC [Concomitant]
     Dosage: UNK
     Route: 065
     Dates: start: 19820101
  13. XANOR [Concomitant]
     Dosage: UNK
     Route: 065
     Dates: start: 19980101

REACTIONS (13)
  - ASPARTATE AMINOTRANSFERASE INCREASED [None]
  - BLOOD CREATININE INCREASED [None]
  - CIRCULATORY COLLAPSE [None]
  - DEHYDRATION [None]
  - DIARRHOEA [None]
  - DRUG TOXICITY [None]
  - ELECTROLYTE IMBALANCE [None]
  - FEBRILE NEUTROPENIA [None]
  - GAMMA-GLUTAMYLTRANSFERASE INCREASED [None]
  - HYPOKALAEMIA [None]
  - HYPONATRAEMIA [None]
  - HYPOTENSION [None]
  - RESPIRATORY FAILURE [None]
